FAERS Safety Report 26044686 (Version 2)
Quarter: 2025Q4

REPORT INFORMATION
  Report Type: Spontaneous
  Country: EU (occurrence: EU)
  Receive Date: 20251114
  Receipt Date: 20251217
  Transmission Date: 20260117
  Serious: Yes (Disabling, Other)
  Sender: CHEPLAPHARM
  Company Number: EU-EUROCEPT-EC20250201

PATIENT
  Age: 32 Year
  Sex: Male

DRUGS (15)
  1. OLANZAPINE [Suspect]
     Active Substance: OLANZAPINE
     Indication: Mania
  2. QUETIAPINE [Suspect]
     Active Substance: QUETIAPINE
     Indication: Mania
  3. CLONAZEPAM [Suspect]
     Active Substance: CLONAZEPAM
  4. CLONAZEPAM [Suspect]
     Active Substance: CLONAZEPAM
     Dosage: DOSE REDUCED
  5. HALOPERIDOL [Suspect]
     Active Substance: HALOPERIDOL
     Indication: Mania
  6. VALPROIC ACID [Suspect]
     Active Substance: VALPROIC ACID
     Indication: Mania
  7. RISPERIDONE [Suspect]
     Active Substance: RISPERIDONE
     Indication: Mania
  8. VENLAFAXINE [Suspect]
     Active Substance: VENLAFAXINE HYDROCHLORIDE
     Indication: Mania
  9. PIPAMPERONE [Suspect]
     Active Substance: PIPAMPERONE
     Indication: Mania
  10. LAMOTRIGINE [Suspect]
     Active Substance: LAMOTRIGINE
     Indication: Mania
  11. MIRTAZAPINE [Suspect]
     Active Substance: MIRTAZAPINE
     Indication: Mania
  12. ARIPIPRAZOLE [Suspect]
     Active Substance: ARIPIPRAZOLE
     Indication: Mania
  13. LITHIUM [Suspect]
     Active Substance: LITHIUM
     Indication: Mania
  14. PENFLURIDOL [Suspect]
     Active Substance: PENFLURIDOL
     Indication: Mania
  15. MIDOMAFETAMINE [Suspect]
     Active Substance: MIDOMAFETAMINE
     Indication: Mania

REACTIONS (7)
  - Suicidal ideation [Recovered/Resolved]
  - Anxiety [Recovered/Resolved]
  - Hyperventilation [Recovered/Resolved]
  - Paroxysmal perceptual alteration [Recovered/Resolved]
  - Off label use [Recovered/Resolved]
  - Visual impairment [Recovered/Resolved]
  - Oscillopsia [Recovered/Resolved]
